FAERS Safety Report 8785997 (Version 1)
Quarter: 2012Q4

REPORT INFORMATION
  Report Type: 
  Country: US (occurrence: US)
  Receive Date: 20120914
  Receipt Date: 20120914
  Transmission Date: 20130627
  Serious: No
  Sender: FDA-Public Use
  Company Number: US-B.I. PHARMACEUTICALS,INC./RIDGEFIELD-2012-BP-22242BP

PATIENT
  Age: 64 Year
  Sex: Female
  Weight: 52 kg

DRUGS (9)
  1. SPIRIVA [Suspect]
     Indication: BRONCHITIS CHRONIC
     Dosage: 18 mcg
     Route: 055
     Dates: start: 201202
  2. SPIRIVA [Suspect]
     Route: 048
     Dates: start: 20120907, end: 20120907
  3. ADVAIR [Concomitant]
     Indication: BRONCHITIS CHRONIC
     Route: 055
     Dates: start: 201202
  4. DOXYCYCLINE [Concomitant]
     Route: 048
     Dates: start: 2008
  5. AMLODIPINE [Concomitant]
     Indication: HYPERTENSION
     Dosage: 10 mg
     Route: 048
     Dates: start: 2003
  6. AMBIEN [Concomitant]
     Indication: SLEEP DISORDER
     Dosage: 10 mg
     Route: 048
     Dates: start: 2010
  7. KLOR-CON [Concomitant]
     Dosage: 10 mEq
     Dates: start: 2012
  8. CITALOPRAM [Concomitant]
     Indication: NERVOUSNESS
     Dosage: 40 mg
     Route: 048
     Dates: start: 2012
  9. PROPANOLOL [Concomitant]
     Indication: TREMOR
     Dosage: 10 mg
     Route: 048
     Dates: start: 2009

REACTIONS (1)
  - Incorrect route of drug administration [Recovered/Resolved]
